FAERS Safety Report 14573700 (Version 7)
Quarter: 2022Q3

REPORT INFORMATION
  Report Type: Spontaneous
  Country: IT (occurrence: IT)
  Receive Date: 20180226
  Receipt Date: 20220628
  Transmission Date: 20221027
  Serious: Yes (Hospitalization, Other)
  Sender: FDA-Public Use
  Company Number: PHHY2017IT201108

PATIENT
  Age: 50 Year
  Sex: Female

DRUGS (11)
  1. METFORMIN [Suspect]
     Active Substance: METFORMIN HYDROCHLORIDE
     Indication: Hypertension
     Dosage: UNK
     Route: 048
  2. METFORMIN [Suspect]
     Active Substance: METFORMIN HYDROCHLORIDE
     Indication: Diabetes mellitus
  3. METFORMIN [Suspect]
     Active Substance: METFORMIN HYDROCHLORIDE
     Indication: Atrial fibrillation
  4. RAMIPRIL [Suspect]
     Active Substance: RAMIPRIL
     Indication: Hypertension
     Dosage: 5 MG
     Route: 048
  5. RAMIPRIL [Suspect]
     Active Substance: RAMIPRIL
     Indication: Diabetes mellitus
  6. RAMIPRIL [Suspect]
     Active Substance: RAMIPRIL
     Indication: Atrial fibrillation
  7. RAMIPRIL [Suspect]
     Active Substance: RAMIPRIL
     Indication: Diabetes mellitus
  8. ASPIRIN [Suspect]
     Active Substance: ASPIRIN
     Indication: Ventricular fibrillation
     Dosage: 300 MG
     Route: 065
  9. ASPIRIN [Suspect]
     Active Substance: ASPIRIN
     Indication: Diabetes mellitus
  10. ASPIRIN [Suspect]
     Active Substance: ASPIRIN
     Indication: Hypertension
  11. ASPIRIN [Suspect]
     Active Substance: ASPIRIN
     Indication: Atrial fibrillation

REACTIONS (5)
  - Hemiplegia [Recovered/Resolved]
  - Basilar artery thrombosis [Recovered/Resolved]
  - Embolic stroke [Recovered/Resolved]
  - Altered state of consciousness [Recovered/Resolved]
  - Product use in unapproved indication [Unknown]
